FAERS Safety Report 8909525 (Version 2)
Quarter: 2013Q1

REPORT INFORMATION
  Report Type: Spontaneous
  Country: US (occurrence: US)
  Receive Date: 20121115
  Receipt Date: 20130123
  Transmission Date: 20140127
  Serious: No
  Sender: FDA-Public Use
  Company Number: US-B.I. PHARMACEUTICALS,INC./RIDGEFIELD-2012-BI-00414BP

PATIENT
  Age: 69 Year
  Sex: Male
  Weight: 147 kg

DRUGS (6)
  1. SPIRIVA [Suspect]
     Indication: DYSPNOEA
     Route: 055
     Dates: start: 2010
  2. SYMBICORT [Concomitant]
     Indication: DYSPNOEA
     Route: 055
     Dates: start: 2010
  3. DILTIAZEM [Concomitant]
     Indication: HYPERTENSION
     Dosage: 240 MG
     Route: 048
  4. WELCHOL [Concomitant]
     Indication: BLOOD CHOLESTEROL INCREASED
     Dosage: 3750 MG
     Route: 048
  5. XARELTO [Concomitant]
     Indication: CARDIAC DISORDER
     Dosage: 20 MG
     Route: 048
     Dates: start: 201210
  6. KLOR  CON [Concomitant]
     Indication: MINERAL SUPPLEMENTATION
     Dosage: 20 MEQ
     Route: 048

REACTIONS (2)
  - Dyspnoea [Not Recovered/Not Resolved]
  - Nasal congestion [Not Recovered/Not Resolved]
